FAERS Safety Report 8918045 (Version 2)
Quarter: 2012Q4

REPORT INFORMATION
  Report Type: 
  Country: GB (occurrence: GB)
  Receive Date: 20121120
  Receipt Date: 20121220
  Transmission Date: 20130627
  Serious: Yes (Other)
  Sender: FDA-Public Use
  Company Number: GB-ALLERGAN-1216032US

PATIENT
  Age: 26 Year
  Sex: Female

DRUGS (2)
  1. OZURDEX [Suspect]
     Indication: INTERMEDIATE UVEITIS
     Dosage: 0.7 mg, single
     Route: 031
     Dates: start: 20120509, end: 20120509
  2. OZURDEX [Suspect]
     Indication: CYSTOID MACULAR OEDEMA

REACTIONS (1)
  - Retinal detachment [Not Recovered/Not Resolved]
